FAERS Safety Report 4474014-X (Version None)
Quarter: 2004Q4

REPORT INFORMATION
  Report Type: 
  Country: None (occurrence: None)
  Receive Date: 20041008
  Receipt Date: 20040927
  Transmission Date: 20050328
  Serious: Yes (Death)
  Sender: FDA-Public Use
  Company Number: 04H-087-0275746-00

PATIENT
  Age: 50 Year
  Sex: Male

DRUGS (3)
  1. PENTAZOCINE LACTATE [Suspect]
     Indication: LYMPHOMA
     Dosage: INTRAVENOUS
     Route: 042
     Dates: start: 20040701
  2. VANCOMYCIN HYDROCHLORIDE [Suspect]
     Dosage: INTRAVENOUS INJECTION
     Route: 042
     Dates: start: 20040801, end: 20040801
  3. VANCOMYCIN HYDROCHLORIDE [Suspect]
     Dosage: PER ORAL
     Route: 048
     Dates: start: 20040801, end: 20040801

REACTIONS (4)
  - ALANINE AMINOTRANSFERASE INCREASED [None]
  - ASPARTATE AMINOTRANSFERASE INCREASED [None]
  - BLOOD BILIRUBIN INCREASED [None]
  - HEPATIC FUNCTION ABNORMAL [None]
